FAERS Safety Report 4778926-9 (Version None)
Quarter: 2005Q3

REPORT INFORMATION
  Report Type: 
  Country: None (occurrence: None)
  Receive Date: 20050922
  Receipt Date: 20050913
  Transmission Date: 20060218
  Serious: Yes (Other)
  Sender: FDA-Public Use
  Company Number: 2005-08-0679

PATIENT
  Age: 68 Year
  Sex: Male
  Weight: 66 kg

DRUGS (5)
  1. PEG-INTRON [Suspect]
     Indication: HEPATITIS C
     Dosage: 60 MCG QW, SUBCUTANEOUS
     Route: 058
     Dates: start: 20041201, end: 20050808
  2. REBETOL [Suspect]
     Indication: HEPATITIS C
     Dosage: 200 MG ORAL
     Route: 048
     Dates: start: 20041201, end: 20050808
  3. VOLTAREN [Suspect]
     Indication: PYREXIA
     Dosage: ~25 MG QW, ORAL
     Route: 048
     Dates: start: 20041001, end: 20050808
  4. TAKEPRON (LANSOPRAZOLE) RAPIDLY-DISINTEGRATING TABLETS [Concomitant]
  5. REBAMIPIDE TABLETS [Concomitant]

REACTIONS (9)
  - CHEST PAIN [None]
  - DYSPHAGIA [None]
  - EROSIVE DUODENITIS [None]
  - EROSIVE OESOPHAGITIS [None]
  - GASTRIC MUCOSAL LESION [None]
  - GASTRITIS EROSIVE [None]
  - GASTROINTESTINAL MUCOSAL DISORDER [None]
  - MALAISE [None]
  - SENSATION OF HEAVINESS [None]
